FAERS Safety Report 7889007-X (Version None)
Quarter: 2011Q4

REPORT INFORMATION
  Report Type: 
  Country: None (occurrence: None)
  Receive Date: 20111101
  Receipt Date: 20111017
  Transmission Date: 20120403
  Serious: Yes (Other)
  Sender: FDA-Public Use
  Company Number: JP-2011-11747

PATIENT
  Age: 58 Year
  Sex: Male

DRUGS (3)
  1. ASPIRIN [Concomitant]
  2. PLETAL [Suspect]
     Indication: LACUNAR INFARCTION
     Dosage: ORAL
     Route: 048
  3. OZAGREL SODIUM (OZAGREL SODIUM) [Concomitant]

REACTIONS (6)
  - NAUSEA [None]
  - CONVULSION [None]
  - VERTEBRAL ARTERY DISSECTION [None]
  - SUBARACHNOID HAEMORRHAGE [None]
  - BLOOD PRESSURE SYSTOLIC INCREASED [None]
  - HEADACHE [None]
